FAERS Safety Report 10184022 (Version 2)
Quarter: 2014Q2

REPORT INFORMATION
  Report Type: Spontaneous
  Country: US (occurrence: US)
  Receive Date: 20140520
  Receipt Date: 20140520
  Transmission Date: 20141212
  Serious: No
  Sender: FDA-Public Use
  Company Number: US-MYLANLABS-2014S1010162

PATIENT
  Age: 57 Year
  Sex: Female

DRUGS (10)
  1. TOLTERODINE TARTRATE EXTENDED-RELEASE CAPSULES [Suspect]
     Indication: HYPERTONIC BLADDER
     Route: 048
     Dates: start: 20140325, end: 2014
  2. TOLTERODINE TARTRATE EXTENDED-RELEASE CAPSULES [Suspect]
     Indication: HYPERTONIC BLADDER
     Route: 048
     Dates: start: 20140325, end: 2014
  3. TOLTERODINE TARTRATE EXTENDED-RELEASE CAPSULES [Suspect]
     Indication: HYPERTONIC BLADDER
     Route: 048
     Dates: start: 2014, end: 2014
  4. TOLTERODINE TARTRATE EXTENDED-RELEASE CAPSULES [Suspect]
     Indication: HYPERTONIC BLADDER
     Route: 048
     Dates: start: 20140325, end: 20140426
  5. SIMVASTATIN [Concomitant]
  6. DOCUSATE SODIUM [Concomitant]
  7. BACLOFEN [Concomitant]
  8. TYLENOL [Concomitant]
  9. TRAMADOL [Concomitant]
  10. FENTANYL [Concomitant]
     Route: 062

REACTIONS (3)
  - Drug ineffective [Recovered/Resolved]
  - Hypertonic bladder [Recovered/Resolved]
  - Urinary incontinence [Recovered/Resolved]
